FAERS Safety Report 7247579-2 (Version None)
Quarter: 2011Q1

REPORT INFORMATION
  Report Type: 
  Country: None (occurrence: None)
  Receive Date: 20110127
  Receipt Date: 20110124
  Transmission Date: 20110831
  Serious: Yes (Hospitalization)
  Sender: FDA-Public Use
  Company Number: MA-ROCHE-755181

PATIENT
  Sex: Female
  Weight: 49 kg

DRUGS (5)
  1. METHOTREXATE [Concomitant]
  2. INDOMETHACIN [Concomitant]
     Dosage: START DATE: 1998.
  3. TOCILIZUMAB [Suspect]
     Indication: RHEUMATOID ARTHRITIS
     Route: 042
     Dates: start: 20100612
  4. CORTANCYL [Concomitant]
     Dosage: START DATE: 1998.
  5. SALAZOPYRINE [Concomitant]

REACTIONS (2)
  - HYPERTENSION [None]
  - EPISTAXIS [None]
